FAERS Safety Report 12880460 (Version 1)
Quarter: 2016Q4

REPORT INFORMATION
  Report Type: Spontaneous
  Country: US (occurrence: US)
  Receive Date: 20161025
  Receipt Date: 20161025
  Transmission Date: 20170207
  Serious: Yes (Other)
  Sender: FDA-Public Use
  Company Number: US-AMGEN-USASP2016144900

PATIENT
  Age: 58 Year
  Sex: Female

DRUGS (1)
  1. ENBREL [Suspect]
     Active Substance: ETANERCEPT
     Indication: PRODUCT USED FOR UNKNOWN INDICATION
     Dosage: UNK
     Route: 065

REACTIONS (7)
  - Femur fracture [Unknown]
  - Upper limb fracture [Unknown]
  - Hip arthroplasty [Unknown]
  - Wrist fracture [Unknown]
  - Fall [Unknown]
  - Humerus fracture [Unknown]
  - Pain [Unknown]

NARRATIVE: CASE EVENT DATE: 2014
